FAERS Safety Report 5389794-9 (Version None)
Quarter: 2007Q3

REPORT INFORMATION
  Report Type: 
  Country: None (occurrence: None)
  Receive Date: 20070713
  Receipt Date: 20070628
  Transmission Date: 20080115
  Serious: Yes (Other)
  Sender: FDA-Public Use
  Company Number: S07-SWI-02889-02

PATIENT

DRUGS (6)
  1. CITALOPRAM HYDROBROMIDE [Suspect]
     Dosage: 20 MG QD; TRANSPLACENTAL
     Route: 064
     Dates: end: 20070202
  2. PURINETHOL [Suspect]
     Dosage: 50 MG QD; TRANSPLACENTAL
     Route: 064
     Dates: end: 20070202
  3. PREDNISONE [Suspect]
     Dosage: 5 MG QD; TRANSPLACENTAL
     Route: 064
     Dates: end: 20070202
  4. CO-DAFALGAN [Suspect]
     Dates: end: 20070202
  5. VI-DE (COLECALCIFEROL) [Concomitant]
  6. ACETAMINOPHEN [Concomitant]

REACTIONS (3)
  - CEREBRAL HAEMORRHAGE NEONATAL [None]
  - DRUG EXPOSURE DURING PREGNANCY [None]
  - PREMATURE BABY [None]
